FAERS Safety Report 8030381-1 (Version None)
Quarter: 2012Q1

REPORT INFORMATION
  Report Type: 
  Country: None (occurrence: None)
  Receive Date: 20120109
  Receipt Date: 20120109
  Transmission Date: 20120608
  Serious: Yes (Other)
  Sender: FDA-Public Use
  Company Number: None

PATIENT
  Sex: Female
  Weight: 52.2 kg

DRUGS (1)
  1. MIDODRINE HYDROCHLORIDE [Suspect]
     Dosage: 5MG
     Route: 048

REACTIONS (1)
  - HYPERTENSION [None]
